FAERS Safety Report 16540115 (Version 2)
Quarter: 2019Q4

REPORT INFORMATION
  Report Type: Spontaneous
  Country: PT (occurrence: PT)
  Receive Date: 20190708
  Receipt Date: 20191028
  Transmission Date: 20200122
  Serious: Yes (Hospitalization, Other)
  Sender: FDA-Public Use
  Company Number: PT-MYLANLABS-2019M1061679

PATIENT
  Age: 40 Year
  Sex: Female

DRUGS (6)
  1. SILDENAFIL. [Concomitant]
     Active Substance: SILDENAFIL
     Indication: PRODUCT USED FOR UNKNOWN INDICATION
     Dosage: UNK
     Route: 065
  2. PREDNISOLONE. [Concomitant]
     Active Substance: PREDNISOLONE
     Dosage: 60 MILLIGRAM
  3. AMLODIPINE [Concomitant]
     Active Substance: AMLODIPINE BESYLATE
     Indication: PRODUCT USED FOR UNKNOWN INDICATION
     Dosage: UNK
     Route: 065
  4. HYDROXYCHLOROQUINE [Concomitant]
     Active Substance: HYDROXYCHLOROQUINE
     Indication: SYSTEMIC LUPUS ERYTHEMATOSUS
     Dosage: 400 MILLIGRAM, QD
     Route: 065
  5. AZATHIOPRINE. [Suspect]
     Active Substance: AZATHIOPRINE
     Indication: SYSTEMIC LUPUS ERYTHEMATOSUS
     Dosage: 100 MILLIGRAM, QD
     Route: 065
  6. PREDNISOLONE. [Concomitant]
     Active Substance: PREDNISOLONE
     Indication: SYSTEMIC LUPUS ERYTHEMATOSUS
     Dosage: 1 MILLIGRAM/KILOGRAM, QD
     Route: 065

REACTIONS (11)
  - Pancytopenia [Recovering/Resolving]
  - Red blood cell poikilocytes present [Recovering/Resolving]
  - Odynophagia [Unknown]
  - Oropharyngeal candidiasis [Recovered/Resolved]
  - Bone marrow toxicity [Recovering/Resolving]
  - Cytomegalovirus infection [Recovering/Resolving]
  - Febrile neutropenia [Recovering/Resolving]
  - Vitamin D deficiency [Recovering/Resolving]
  - Leukoplakia [Recovered/Resolved]
  - Product use issue [Unknown]
  - Cytomegalovirus mucocutaneous ulcer [Recovered/Resolved]
